FAERS Safety Report 4675833-7 (Version None)
Quarter: 2005Q2

REPORT INFORMATION
  Report Type: 
  Country: None (occurrence: None)
  Receive Date: 20050527
  Receipt Date: 20050510
  Transmission Date: 20051028
  Serious: Yes (Life-Threatening, Hospitalization, Other)
  Sender: FDA-Public Use
  Company Number: US-BOEHRINGER INGELHEIM PHARMACEUTICALS, INC.-2005-BP-07796BP

PATIENT
  Sex: Female

DRUGS (7)
  1. MIRAPEX [Suspect]
     Indication: DEPRESSION
     Route: 048
     Dates: start: 19980101
  2. MIRAPEX [Suspect]
     Indication: BIPOLAR DISORDER
  3. MIRAPEX [Suspect]
     Indication: MOOD ALTERED
  4. ADDERALL 10 [Concomitant]
     Dosage: 20 MG/2/DAY
  5. AMBIEN [Concomitant]
     Indication: SOMNOLENCE
  6. ACTINOL [Concomitant]
  7. DARVOCET [Concomitant]

REACTIONS (5)
  - ADENOCARCINOMA [None]
  - INFLAMMATORY CARCINOMA OF THE BREAST [None]
  - MASTITIS [None]
  - SOMNOLENCE [None]
  - STAPHYLOCOCCAL INFECTION [None]
